FAERS Safety Report 12432798 (Version 2)
Quarter: 2016Q2

REPORT INFORMATION
  Report Type: Spontaneous
  Country: US (occurrence: US)
  Receive Date: 20160603
  Receipt Date: 20160614
  Transmission Date: 20160815
  Serious: Yes (Hospitalization)
  Sender: FDA-Public Use
  Company Number: US-ASTRAZENECA-2016SE55342

PATIENT
  Sex: Female

DRUGS (2)
  1. TUDORZA PRESSAIR [Suspect]
     Active Substance: ACLIDINIUM BROMIDE
     Indication: ASTHMA
     Dosage: 400MCG, ONE PUFF TWICE A DAY
     Route: 055
  2. TUDORZA PRESSAIR [Suspect]
     Active Substance: ACLIDINIUM BROMIDE
     Indication: CHRONIC OBSTRUCTIVE PULMONARY DISEASE
     Dosage: 400MCG, ONE PUFF TWICE A DAY
     Route: 055

REACTIONS (11)
  - Pneumonia viral [Unknown]
  - Fatigue [Unknown]
  - Intentional product misuse [Unknown]
  - Product quality issue [Unknown]
  - Visual acuity reduced [Unknown]
  - Product use issue [Unknown]
  - Drug dose omission [Unknown]
  - Asthenia [Unknown]
  - Off label use [Unknown]
  - Neuropathy peripheral [Unknown]
  - Chest discomfort [Unknown]
